FAERS Safety Report 23128699 (Version 1)
Quarter: 2023Q4

REPORT INFORMATION
  Report Type: Report from Study
  Country: US (occurrence: US)
  Receive Date: 20231031
  Receipt Date: 20231031
  Transmission Date: 20240109
  Serious: Yes (Other)
  Sender: FDA-Public Use
  Company Number: US-ABBVIE-5361897

PATIENT
  Age: 68 Year
  Sex: Male
  Weight: 113 kg

DRUGS (56)
  1. RINVOQ [Suspect]
     Active Substance: UPADACITINIB
     Indication: Rheumatoid arthritis
     Dosage: ER
     Route: 048
     Dates: start: 20200102, end: 20200803
  2. RINVOQ [Suspect]
     Active Substance: UPADACITINIB
     Indication: Rheumatoid arthritis
     Route: 048
     Dates: start: 20190710
  3. RINVOQ [Suspect]
     Active Substance: UPADACITINIB
     Indication: Rheumatoid arthritis
     Route: 048
     Dates: start: 20200803, end: 20220719
  4. RINVOQ [Suspect]
     Active Substance: UPADACITINIB
     Indication: Rheumatoid arthritis
     Dosage: ER
     Route: 048
     Dates: start: 20210219, end: 20210629
  5. RINVOQ [Suspect]
     Active Substance: UPADACITINIB
     Indication: Rheumatoid arthritis
     Dosage: ER
     Route: 048
     Dates: start: 20220407, end: 20230803
  6. RINVOQ [Suspect]
     Active Substance: UPADACITINIB
     Indication: Rheumatoid arthritis
     Route: 048
     Dates: start: 20221219
  7. RINVOQ [Suspect]
     Active Substance: UPADACITINIB
     Indication: Rheumatoid arthritis
     Route: 048
  8. Vit-B12 [Concomitant]
     Indication: Product used for unknown indication
     Dosage: DISPENSE 3 MONTHS
     Route: 030
     Dates: start: 20230803
  9. Vit-B12 [Concomitant]
     Indication: Product used for unknown indication
     Dosage: DISPENSE 3 MONTHS
     Route: 030
     Dates: start: 20230320, end: 20230803
  10. Vit-B12 [Concomitant]
     Indication: Product used for unknown indication
     Dosage: DISPENSE 3 MONTHS
     Route: 030
     Dates: start: 20221219, end: 20230320
  11. Vit-B12 [Concomitant]
     Indication: Product used for unknown indication
     Dosage: DISPENSE 3 MONTHS
     Route: 030
     Dates: start: 20220719, end: 20221219
  12. Vit-B12 [Concomitant]
     Indication: Product used for unknown indication
     Dosage: DISPENSE 3 MONTHS
     Route: 030
     Dates: start: 20220331, end: 20220719
  13. Vit-B12 [Concomitant]
     Indication: Product used for unknown indication
     Dosage: DISPENSE 3 MONTHS
     Route: 030
     Dates: start: 20210930, end: 20220331
  14. Vit-B12 [Concomitant]
     Indication: Product used for unknown indication
     Dosage: DISPENSE 3 MONTHS
     Route: 030
     Dates: start: 20210713, end: 20210713
  15. Vit-B12 [Concomitant]
     Indication: Product used for unknown indication
     Dosage: DISPENSE 3 MONTHS
     Route: 030
     Dates: start: 20210713, end: 20210930
  16. Vit-B12 [Concomitant]
     Indication: Product used for unknown indication
     Dosage: DISPENSE 3 MONTHS
     Route: 030
     Dates: start: 20210211, end: 20210713
  17. Vit-B12 [Concomitant]
     Indication: Product used for unknown indication
     Dosage: DISPENSE 3 MONTHS
     Route: 030
     Dates: start: 20201012, end: 20210211
  18. Vit-B12 [Concomitant]
     Indication: Product used for unknown indication
     Dosage: DISPENSE 3 MONTHS
     Route: 030
     Dates: start: 20200618, end: 20201012
  19. Vit-B12 [Concomitant]
     Indication: Product used for unknown indication
     Dosage: DISPENSE 3 MONTHS
     Route: 030
     Dates: start: 20200310, end: 20200310
  20. Vit-B12 [Concomitant]
     Indication: Product used for unknown indication
     Dosage: DISPENSE 3 MONTHS
     Route: 030
     Dates: start: 20200310, end: 20200618
  21. Vit-B12 [Concomitant]
     Indication: Product used for unknown indication
     Dosage: DISPENSE 3 MONTHS
     Route: 030
     Dates: start: 20191210, end: 20200310
  22. ALLOPURINOL [Concomitant]
     Active Substance: ALLOPURINOL
     Indication: Product used for unknown indication
     Dosage: TAKE 1 AND 1/2 TABLET DAILY
     Dates: start: 20230803
  23. ALLOPURINOL [Concomitant]
     Active Substance: ALLOPURINOL
     Indication: Product used for unknown indication
     Dosage: TAKE 1 AND 1/2 TABLETS DAILY
     Route: 048
     Dates: start: 20210211, end: 20210629
  24. ALLOPURINOL [Concomitant]
     Active Substance: ALLOPURINOL
     Indication: Product used for unknown indication
     Dosage: TAKE 1 AND 1/2 TABLETS DAILY
     Route: 048
     Dates: start: 20201012, end: 20210211
  25. ALLOPURINOL [Concomitant]
     Active Substance: ALLOPURINOL
     Indication: Product used for unknown indication
     Dosage: TAKE 1 AND 1/2 TABLETS DAILY
     Route: 048
     Dates: start: 20200928, end: 20201012
  26. ALLOPURINOL [Concomitant]
     Active Substance: ALLOPURINOL
     Indication: Product used for unknown indication
     Dosage: TAKE 1 AND 1/2 TABLETS DAILY
     Route: 048
     Dates: start: 20200618, end: 20200928
  27. ALLOPURINOL [Concomitant]
     Active Substance: ALLOPURINOL
     Indication: Product used for unknown indication
     Dosage: TAKE 1 AND 1/2 TABLETS DAILY
     Route: 048
     Dates: start: 20200310, end: 20200618
  28. ALLOPURINOL [Concomitant]
     Active Substance: ALLOPURINOL
     Indication: Product used for unknown indication
     Dosage: TAKE 1 AND 1/2 TABLETS DAILY
     Route: 048
     Dates: start: 20230320, end: 20230320
  29. ALLOPURINOL [Concomitant]
     Active Substance: ALLOPURINOL
     Indication: Product used for unknown indication
     Dosage: TAKE 1 AND 1/2 TABLETS DAILY
     Route: 048
     Dates: start: 20230320, end: 20230803
  30. ALLOPURINOL [Concomitant]
     Active Substance: ALLOPURINOL
     Indication: Product used for unknown indication
     Dosage: TAKE 1 AND 1/2 TABLETS DAILY
     Route: 048
     Dates: start: 20221219, end: 20230320
  31. ALLOPURINOL [Concomitant]
     Active Substance: ALLOPURINOL
     Indication: Product used for unknown indication
     Dosage: TAKE 1 AND 1/2 TABLETS DAILY
     Route: 048
     Dates: start: 20220719, end: 20221219
  32. ALLOPURINOL [Concomitant]
     Active Substance: ALLOPURINOL
     Indication: Product used for unknown indication
     Dosage: TAKE 1 AND 1/2 TABLETS DAILY
     Route: 048
     Dates: start: 20220331, end: 20220719
  33. ALLOPURINOL [Concomitant]
     Active Substance: ALLOPURINOL
     Indication: Product used for unknown indication
     Dosage: TAKE 1 AND 1/2 TABLETS DAILY
     Route: 048
     Dates: start: 20211202, end: 20220331
  34. ALLOPURINOL [Concomitant]
     Active Substance: ALLOPURINOL
     Indication: Product used for unknown indication
     Dosage: TAKE 1 AND 1/2 TABLETS DAILY
     Route: 048
     Dates: start: 20210930, end: 20211202
  35. ALLOPURINOL [Concomitant]
     Active Substance: ALLOPURINOL
     Indication: Product used for unknown indication
     Dosage: TAKE 1 AND 1/2 TABLETS DAILY
     Route: 048
     Dates: start: 20210713, end: 20210930
  36. ALLOPURINOL [Concomitant]
     Active Substance: ALLOPURINOL
     Indication: Product used for unknown indication
     Dosage: TAKE 1 AND 1/2 TABLETS DAILY
     Route: 048
     Dates: start: 20210629, end: 20210713
  37. DICLOFENAC SODIUM [Concomitant]
     Active Substance: DICLOFENAC\DICLOFENAC SODIUM
     Indication: Product used for unknown indication
     Dosage: DELAYED RELEASE?WITH FOOD AND STOP THE MOBIC
     Route: 048
     Dates: start: 20230803
  38. DICLOFENAC SODIUM [Concomitant]
     Active Substance: DICLOFENAC\DICLOFENAC SODIUM
     Indication: Product used for unknown indication
     Dosage: DELAYED RELEASE?WITH FOOD AND STOP THE MOBIC
     Route: 048
     Dates: start: 20230320, end: 20230803
  39. DICLOFENAC SODIUM [Concomitant]
     Active Substance: DICLOFENAC\DICLOFENAC SODIUM
     Indication: Product used for unknown indication
     Dosage: DELAYED RELEASE?WITH FOOD AND STOP THE MOBIC
     Route: 048
     Dates: start: 20221219, end: 20230320
  40. DICLOFENAC SODIUM [Concomitant]
     Active Substance: DICLOFENAC\DICLOFENAC SODIUM
     Indication: Product used for unknown indication
     Dosage: DELAYED RELEASE?WITH FOOD AND STOP THE MOBIC
     Route: 048
     Dates: start: 20220719, end: 20221219
  41. DICLOFENAC SODIUM [Concomitant]
     Active Substance: DICLOFENAC\DICLOFENAC SODIUM
     Indication: Product used for unknown indication
     Dosage: DELAYED RELEASE?WITH FOOD AND STOP THE MOBIC
     Route: 048
     Dates: start: 20220331, end: 20220719
  42. DICLOFENAC SODIUM [Concomitant]
     Active Substance: DICLOFENAC\DICLOFENAC SODIUM
     Indication: Product used for unknown indication
     Dosage: DELAYED RELEASE?WITH FOOD AND STOP THE MOBIC
     Route: 048
     Dates: start: 20210930, end: 20220331
  43. DICLOFENAC SODIUM [Concomitant]
     Active Substance: DICLOFENAC\DICLOFENAC SODIUM
     Indication: Product used for unknown indication
     Dosage: DELAYED RELEASE?WITH FOOD AND STOP THE MOBIC
     Route: 048
     Dates: start: 20210713, end: 20210930
  44. DICLOFENAC SODIUM [Concomitant]
     Active Substance: DICLOFENAC\DICLOFENAC SODIUM
     Indication: Product used for unknown indication
     Dosage: DELAYED RELEASE?WITH FOOD AND STOP THE MOBIC
     Route: 048
     Dates: start: 20210629, end: 20210713
  45. DICLOFENAC SODIUM [Concomitant]
     Active Substance: DICLOFENAC\DICLOFENAC SODIUM
     Indication: Product used for unknown indication
     Dosage: DELAYED RELEASE?WITH FOOD AND STOP THE MOBIC
     Route: 048
     Dates: start: 20210211, end: 20210629
  46. DICLOFENAC SODIUM [Concomitant]
     Active Substance: DICLOFENAC\DICLOFENAC SODIUM
     Indication: Product used for unknown indication
     Dosage: DELAYED RELEASE?WITH FOOD AND STOP THE MOBIC
     Route: 048
     Dates: start: 20201012, end: 20210211
  47. DICLOFENAC SODIUM [Concomitant]
     Active Substance: DICLOFENAC\DICLOFENAC SODIUM
     Indication: Product used for unknown indication
     Dosage: DELAYED RELEASE?WITH FOOD AND STOP THE MOBIC
     Route: 048
     Dates: start: 20200310, end: 20201012
  48. VITAMIN D2 [Concomitant]
     Active Substance: ERGOCALCIFEROL
     Indication: Product used for unknown indication
     Route: 048
     Dates: start: 20230803
  49. VITAMIN D2 [Concomitant]
     Active Substance: ERGOCALCIFEROL
     Indication: Product used for unknown indication
     Route: 048
     Dates: start: 20230320, end: 20230803
  50. VITAMIN D2 [Concomitant]
     Active Substance: ERGOCALCIFEROL
     Indication: Product used for unknown indication
     Route: 048
     Dates: start: 20221219, end: 20221220
  51. VITAMIN D2 [Concomitant]
     Active Substance: ERGOCALCIFEROL
     Indication: Product used for unknown indication
     Route: 048
     Dates: start: 20220719, end: 20221219
  52. VITAMIN D2 [Concomitant]
     Active Substance: ERGOCALCIFEROL
     Indication: Product used for unknown indication
     Route: 048
     Dates: start: 20220407, end: 20220719
  53. LISINOPRIL AND HYDROCHLOROTHIAZIDE [Concomitant]
     Active Substance: HYDROCHLOROTHIAZIDE\LISINOPRIL
     Indication: Product used for unknown indication
     Route: 048
  54. OMEPRAZOLE [Concomitant]
     Active Substance: OMEPRAZOLE
     Indication: Product used for unknown indication
     Dosage: DELAYED RELEASE?TAKE 1 CAPSULE BY ORAL ROUTE EVERYDAY BEFORE A MEAL
     Route: 048
  55. PREDNISONE [Concomitant]
     Active Substance: PREDNISONE
     Indication: Product used for unknown indication
     Dosage: TAKE TAPER DOSE AS INDICATED?TAKE 5 TABLETS A DAY X 4 DAYS?TAKE 4 TABLETS A DAY X 4 DAYS?TAKE 3 T...
     Route: 048
     Dates: start: 20210930, end: 20220331
  56. PREDNISONE [Concomitant]
     Active Substance: PREDNISONE
     Indication: Product used for unknown indication
     Dosage: TAKE 1 TABLET BY ORAL ROUTE EVERYDAY PRN FOR ARTHRITIS FLARE
     Route: 048
     Dates: start: 20191231, end: 20200718

REACTIONS (4)
  - Arthralgia [Not Recovered/Not Resolved]
  - Neck pain [Not Recovered/Not Resolved]
  - Paraesthesia [Unknown]
  - Tooth fracture [Unknown]

NARRATIVE: CASE EVENT DATE: 20221001
